FAERS Safety Report 6382588-7 (Version None)
Quarter: 2009Q3

REPORT INFORMATION
  Report Type: 
  Country: None (occurrence: None)
  Receive Date: 20090930
  Receipt Date: 20090923
  Transmission Date: 20100115
  Serious: Yes (Life-Threatening)
  Sender: FDA-Public Use
  Company Number: B0594585A

PATIENT
  Age: 22 Year
  Sex: Female

DRUGS (1)
  1. CLENIL MODULITE [Suspect]
     Route: 055

REACTIONS (1)
  - ASTHMA [None]
